FAERS Safety Report 4914981-0 (Version None)
Quarter: 2006Q1

REPORT INFORMATION
  Report Type: 
  Country: None (occurrence: None)
  Receive Date: 20060217
  Receipt Date: 20060209
  Transmission Date: 20060701
  Serious: Yes (Other)
  Sender: FDA-Public Use
  Company Number: PHBS2006NL02203

PATIENT
  Age: 59 Year
  Sex: Male

DRUGS (1)
  1. RITALIN [Suspect]
     Dosage: 20 MG, BID
     Route: 048

REACTIONS (2)
  - BRUXISM [None]
  - TRISMUS [None]
